FAERS Safety Report 7485090-4 (Version None)
Quarter: 2011Q1

REPORT INFORMATION
  Report Type: 
  Country: None (occurrence: None)
  Receive Date: 20110310
  Receipt Date: 20100414
  Transmission Date: 20110831
  Serious: No
  Sender: FDA-Public Use
  Company Number: 560053

PATIENT
  Sex: Male

DRUGS (2)
  1. FENTANYL CITRATE [Suspect]
     Indication: PRODUCT USED FOR UNKNOWN INDICATION
     Dosage: 200ML/HR, CONTINUOUS, INTRAVENOUS
     Route: 042
     Dates: start: 20100101, end: 20100101
  2. (VASOPRESSIN) [Concomitant]

REACTIONS (2)
  - BLOOD PRESSURE DECREASED [None]
  - INCORRECT DRUG ADMINISTRATION RATE [None]
